FAERS Safety Report 14157967 (Version 1)
Quarter: 2017Q4

REPORT INFORMATION
  Report Type: Spontaneous
  Country: CO (occurrence: CO)
  Receive Date: 20171103
  Receipt Date: 20171103
  Transmission Date: 20180321
  Serious: Yes (Death, Hospitalization)
  Sender: FDA-Public Use
  Company Number: CO-SPECTRUM PHARMACEUTICALS, INC.-17-F-CO-00340

PATIENT
  Age: 28 Year
  Sex: Male

DRUGS (3)
  1. CYANOCOBALAMIN. [Concomitant]
     Active Substance: CYANOCOBALAMIN
     Indication: PRODUCT USED FOR UNKNOWN INDICATION
     Dosage: UNK
  2. FOLOTYN [Suspect]
     Active Substance: PRALATREXATE
     Indication: PERIPHERAL T-CELL LYMPHOMA UNSPECIFIED
     Dosage: 55 MG, WEEKLY
     Route: 042
     Dates: start: 20170714, end: 20170915
  3. FOLIC ACID. [Concomitant]
     Active Substance: FOLIC ACID
     Indication: PRODUCT USED FOR UNKNOWN INDICATION

REACTIONS (3)
  - Gingivitis [Unknown]
  - Urticaria [Unknown]
  - Disease progression [Fatal]

NARRATIVE: CASE EVENT DATE: 20171015
